FAERS Safety Report 5322685-8 (Version None)
Quarter: 2007Q2

REPORT INFORMATION
  Report Type: 
  Country: None (occurrence: None)
  Receive Date: 20070511
  Receipt Date: 20070430
  Transmission Date: 20071010
  Serious: Yes (Other)
  Sender: FDA-Public Use
  Company Number: US-PFIZER INC-2007026419

PATIENT
  Sex: Female
  Weight: 89.4 kg

DRUGS (12)
  1. CHANTIX [Suspect]
     Indication: SMOKING CESSATION THERAPY
     Route: 048
     Dates: start: 20070311, end: 20070320
  2. CHANTIX [Suspect]
     Indication: NICOTINE DEPENDENCE
  3. XANAX [Suspect]
     Indication: ANXIETY
  4. VYTORIN [Concomitant]
     Dosage: TEXT:10/40
  5. LEVOXYL [Concomitant]
  6. LISINOPRIL [Concomitant]
  7. PROZAC [Concomitant]
  8. PIOGLITAZONE [Concomitant]
  9. METFORMIN HCL [Concomitant]
  10. AMARYL [Concomitant]
  11. BYETTA [Concomitant]
  12. PRINZIDE [Concomitant]
     Dosage: TEXT:10/12.5

REACTIONS (8)
  - ABNORMAL DREAMS [None]
  - BLOOD GLUCOSE INCREASED [None]
  - FEELING ABNORMAL [None]
  - HALLUCINATION [None]
  - HEADACHE [None]
  - MEMORY IMPAIRMENT [None]
  - MENTAL IMPAIRMENT [None]
  - PERSONALITY CHANGE [None]
